FAERS Safety Report 22232461 (Version 1)
Quarter: 2023Q2

REPORT INFORMATION
  Report Type: Spontaneous
  Country: US (occurrence: None)
  Receive Date: 20230420
  Receipt Date: 20230420
  Transmission Date: 20230721
  Serious: No
  Sender: FDA-Public Use
  Company Number: US-ROCHE-3117130

PATIENT
  Sex: Female

DRUGS (1)
  1. ESBRIET [Suspect]
     Active Substance: PIRFENIDONE
     Indication: Idiopathic pulmonary fibrosis
     Dosage: TAKE 1 TABLET BY MOUTH 3 TIMES DAILY FOR 1 WEEK THEN 2 TABLETS BY MOUTH 3 TIMES DAILY FOR 1 WEEK THE
     Route: 048

REACTIONS (7)
  - Productive cough [Unknown]
  - Paranasal sinus hypersecretion [Unknown]
  - Hypersensitivity [Unknown]
  - Dyspnoea [Unknown]
  - Depression [Unknown]
  - Intervertebral disc protrusion [Unknown]
  - Fibromyalgia [Unknown]
